FAERS Safety Report 24350464 (Version 2)
Quarter: 2025Q1

REPORT INFORMATION
  Report Type: Spontaneous
  Country: US (occurrence: US)
  Receive Date: 20240923
  Receipt Date: 20250331
  Transmission Date: 20250408
  Serious: No
  Sender: AUROBINDO
  Company Number: US-AUROBINDO-AUR-APL-2024-041501

PATIENT
  Age: 60 Year
  Sex: Female
  Weight: 146.9 kg

DRUGS (1)
  1. LENALIDOMIDE [Suspect]
     Active Substance: LENALIDOMIDE
     Indication: Plasma cell myeloma
     Dosage: UNK, ONCE A DAY (DAILY ON DAYS 1-21 OF 28 DAY CYCLE)
     Route: 048
     Dates: start: 20240719

REACTIONS (3)
  - COVID-19 [Unknown]
  - Nasopharyngitis [Unknown]
  - Therapy interrupted [Unknown]
